FAERS Safety Report 13439018 (Version 1)
Quarter: 2017Q2

REPORT INFORMATION
  Report Type: Spontaneous
  Country: US (occurrence: US)
  Receive Date: 20170413
  Receipt Date: 20170413
  Transmission Date: 20170830
  Serious: No
  Sender: FDA-Public Use
  Company Number: US-ROCHE-1091996

PATIENT
  Sex: Female

DRUGS (4)
  1. ELAVIL [Concomitant]
     Active Substance: AMITRIPTYLINE HYDROCHLORIDE
     Route: 048
  2. KEPPRA [Concomitant]
     Active Substance: LEVETIRACETAM
     Route: 065
  3. ROCEPHIN [Suspect]
     Active Substance: CEFTRIAXONE SODIUM
     Dosage: DILUTED IN 20 ML OVER 5 MIN
     Route: 042
  4. ROCEPHIN [Suspect]
     Active Substance: CEFTRIAXONE SODIUM
     Indication: LYME DISEASE
     Dosage: DILUTED WITH 65 ML FLUID OVER 30 MIN
     Route: 042

REACTIONS (6)
  - Lyme disease [Not Recovered/Not Resolved]
  - Implant site discolouration [Not Recovered/Not Resolved]
  - Infection [Not Recovered/Not Resolved]
  - Injection site pain [Not Recovered/Not Resolved]
  - Catheter site swelling [Not Recovered/Not Resolved]
  - Implant site induration [Not Recovered/Not Resolved]
